FAERS Safety Report 17636246 (Version 3)
Quarter: 2021Q4

REPORT INFORMATION
  Report Type: Spontaneous
  Country: DE (occurrence: DE)
  Receive Date: 20200407
  Receipt Date: 20211223
  Transmission Date: 20220303
  Serious: Yes (Death, Disabling, Congenital Anomaly, Other)
  Sender: FDA-Public Use
  Company Number: None

PATIENT

DRUGS (25)
  1. TACROLIMUS [Suspect]
     Active Substance: TACROLIMUS
     Indication: Embolism venous
     Route: 064
  2. TACROLIMUS [Suspect]
     Active Substance: TACROLIMUS
     Indication: Systemic lupus erythematosus
     Route: 064
  3. TACROLIMUS [Suspect]
     Active Substance: TACROLIMUS
     Indication: Foetal exposure during pregnancy
     Route: 064
  4. RIVAROXABAN [Suspect]
     Active Substance: RIVAROXABAN
     Indication: Product used for unknown indication
     Route: 064
  5. RIVAROXABAN [Suspect]
     Active Substance: RIVAROXABAN
     Indication: Foetal exposure during pregnancy
     Route: 064
  6. NICOTINE [Suspect]
     Active Substance: NICOTINE
     Indication: Foetal exposure during pregnancy
     Route: 064
  7. SIMVASTATIN [Suspect]
     Active Substance: SIMVASTATIN
     Indication: Foetal exposure during pregnancy
     Route: 064
  8. ASPIRIN [Suspect]
     Active Substance: ASPIRIN
     Indication: Product used for unknown indication
     Route: 064
  9. ASPIRIN [Suspect]
     Active Substance: ASPIRIN
     Indication: Foetal exposure during pregnancy
     Route: 064
  10. PANTOPRAZOLE [Suspect]
     Active Substance: PANTOPRAZOLE
     Indication: Foetal exposure during pregnancy
     Route: 064
  11. PANTOPRAZOLE [Suspect]
     Active Substance: PANTOPRAZOLE
     Indication: Product used for unknown indication
     Route: 064
  12. TORSEMIDE [Suspect]
     Active Substance: TORSEMIDE
     Indication: Foetal exposure during pregnancy
     Route: 064
  13. RAMIPRIL [Suspect]
     Active Substance: RAMIPRIL
     Indication: Product used for unknown indication
     Route: 064
  14. RAMIPRIL [Suspect]
     Active Substance: RAMIPRIL
     Indication: Foetal exposure during pregnancy
     Route: 064
  15. ALISKIREN [Suspect]
     Active Substance: ALISKIREN
     Indication: Foetal exposure during pregnancy
     Route: 064
  16. PREDNISOLONE [Suspect]
     Active Substance: PREDNISOLONE
     Indication: Product used for unknown indication
     Route: 064
  17. PREDNISOLONE [Suspect]
     Active Substance: PREDNISOLONE
     Indication: Foetal exposure during pregnancy
     Route: 064
  18. DIPYRONE [Suspect]
     Active Substance: DIPYRONE
     Indication: Exposure during pregnancy
     Route: 064
  19. DIPYRONE [Suspect]
     Active Substance: DIPYRONE
     Indication: Foetal exposure during pregnancy
     Route: 064
  20. HYDROXYCHLOROQUINE SULFATE [Suspect]
     Active Substance: HYDROXYCHLOROQUINE SULFATE
     Indication: Foetal exposure during pregnancy
     Route: 064
  21. HEPARIN [Suspect]
     Active Substance: HEPARIN SODIUM
     Indication: Product used for unknown indication
     Route: 064
  22. HEPARIN [Suspect]
     Active Substance: HEPARIN SODIUM
     Indication: Foetal exposure during pregnancy
     Route: 064
  23. ALBUTEROL SULFATE [Suspect]
     Active Substance: ALBUTEROL SULFATE
     Indication: Product used for unknown indication
     Route: 064
  24. ALBUTEROL SULFATE [Suspect]
     Active Substance: ALBUTEROL SULFATE
     Indication: Foetal exposure during pregnancy
     Route: 064
  25. EZETIMIBE [Suspect]
     Active Substance: EZETIMIBE
     Indication: Foetal exposure during pregnancy
     Route: 064

REACTIONS (8)
  - Truncus arteriosus persistent [Fatal]
  - Congenital cardiovascular anomaly [Fatal]
  - Ventricular septal defect [Fatal]
  - Heart disease congenital [Fatal]
  - Foetal exposure during pregnancy [Fatal]
  - Abortion induced [Fatal]
  - Cardiac septal defect [Fatal]
  - Foetal exposure during pregnancy [Unknown]
